FAERS Safety Report 25096306 (Version 1)
Quarter: 2025Q1

REPORT INFORMATION
  Report Type: Report from Study
  Country: MX (occurrence: MX)
  Receive Date: 20250319
  Receipt Date: 20250319
  Transmission Date: 20250408
  Serious: Yes (Other)
  Sender: SANDOZ
  Company Number: MX-SANDOZ-SDZ2025MX016154

PATIENT
  Age: 10 Year
  Sex: Male
  Weight: 31.7 kg

DRUGS (3)
  1. OMNITROPE [Suspect]
     Active Substance: SOMATROPIN
     Dosage: 2 MG, QD
     Route: 058
     Dates: start: 20241211
  2. OMNITROPE [Suspect]
     Active Substance: SOMATROPIN
     Indication: Precocious puberty
     Dosage: 2 MG, QD, START DATE: JAN-2025
     Route: 058
  3. ESTROGENS [Concomitant]
     Active Substance: ESTROGENS
     Indication: Antiandrogen therapy
     Route: 065

REACTIONS (4)
  - Muscle hypertrophy [Unknown]
  - Drug administered in wrong device [Unknown]
  - Off label use [Unknown]
  - Product dose omission issue [Unknown]

NARRATIVE: CASE EVENT DATE: 20241211
